FAERS Safety Report 7290122-2 (Version None)
Quarter: 2011Q1

REPORT INFORMATION
  Report Type: 
  Country: None (occurrence: None)
  Receive Date: 20110214
  Receipt Date: 20110207
  Transmission Date: 20110831
  Serious: Yes (Hospitalization, Other)
  Sender: FDA-Public Use
  Company Number: US-BRISTOL-MYERS SQUIBB COMPANY-15534100

PATIENT
  Age: 56 Year
  Sex: Female

DRUGS (9)
  1. ZOLOFT [Concomitant]
  2. LEVAQUIN [Concomitant]
  3. LOTENSIN [Concomitant]
  4. LOPRESSOR [Concomitant]
  5. COUMADIN [Suspect]
     Indication: ATRIAL FIBRILLATION
     Dates: start: 20050101
  6. PLAVIX [Suspect]
     Indication: CEREBROVASCULAR ACCIDENT
     Route: 048
     Dates: start: 20030101, end: 20101201
  7. ASPIRIN [Suspect]
     Route: 065
     Dates: end: 20101201
  8. GLUCOPHAGE [Concomitant]
  9. NORVASC [Concomitant]

REACTIONS (3)
  - CEREBROVASCULAR ACCIDENT [None]
  - LIGAMENT INJURY [None]
  - HAEMORRHAGE [None]
